FAERS Safety Report 8080535-3 (Version None)
Quarter: 2012Q1

REPORT INFORMATION
  Report Type: 
  Country: None (occurrence: None)
  Receive Date: 20120130
  Receipt Date: 20120120
  Transmission Date: 20120608
  Serious: Yes (Hospitalization, Disabling, Other)
  Sender: FDA-Public Use
  Company Number: US-BAYER-2011-049578

PATIENT
  Age: 17 Year
  Sex: Female
  Weight: 70.295 kg

DRUGS (2)
  1. YAZ [Suspect]
     Indication: ORAL CONTRACEPTION
     Dosage: UNK
     Dates: start: 20080101, end: 20100101
  2. LEXAPRO [Concomitant]

REACTIONS (9)
  - CHOLECYSTITIS [None]
  - VOMITING [None]
  - INJURY [None]
  - GALLBLADDER OPERATION [None]
  - IMPAIRED WORK ABILITY [None]
  - ADHESION [None]
  - CHOLECYSTITIS CHRONIC [None]
  - PAIN [None]
  - NAUSEA [None]
